FAERS Safety Report 7022233-0 (Version None)
Quarter: 2010Q3

REPORT INFORMATION
  Report Type: 
  Country: None (occurrence: None)
  Receive Date: 20100930
  Receipt Date: 20100917
  Transmission Date: 20110219
  Serious: Yes (Other)
  Sender: FDA-Public Use
  Company Number: JP-ELI_LILLY_AND_COMPANY-JP201009004280

PATIENT
  Age: 75 Year
  Sex: Female

DRUGS (4)
  1. CYMBALTA [Suspect]
  2. PREDONINE [Concomitant]
     Dosage: UNK, UNK
     Route: 048
  3. MEILAX [Concomitant]
  4. SEDIEL [Concomitant]

REACTIONS (1)
  - PLATELET COUNT DECREASED [None]
